FAERS Safety Report 9555618 (Version 1)
Quarter: 2013Q3

REPORT INFORMATION
  Report Type: Spontaneous
  Country: US (occurrence: None)
  Receive Date: 20130724
  Receipt Date: 20130724
  Transmission Date: 20140515
  Serious: Yes (Other)
  Sender: FDA-Public Use
  Company Number: PHEH2013US006239

PATIENT
  Age: 49 Year
  Sex: Female
  Weight: 92.5 kg

DRUGS (12)
  1. GILENYA (FINGOLIMOD) CAPSULE, 0.5MG [Suspect]
     Route: 048
  2. AMPYRA (FAMPRIDINE) [Concomitant]
  3. OXYTROL (OXYBUTYNIN) [Concomitant]
  4. AVONEX (INTERFERON BETA-1A) [Concomitant]
  5. VITAMIN C [Concomitant]
  6. MULTI-VIT (VITAMINS NOS) [Concomitant]
  7. VIT D (ERGOCALCIFEROL) [Concomitant]
  8. FISH OIL (FISH OIL) [Concomitant]
  9. CYCLOBENZAPRINE (CYCLOBENZAPRINE) [Concomitant]
  10. TRAZODONE (TRAZODONE) [Concomitant]
  11. BACLOFEN (BACLOFEN) [Concomitant]
  12. SERTRALINE (SERTRALINE) [Concomitant]

REACTIONS (1)
  - Diplopia [None]
